FAERS Safety Report 9470809 (Version 1)
Quarter: 2013Q3

REPORT INFORMATION
  Report Type: Spontaneous
  Country: US (occurrence: US)
  Receive Date: 20130822
  Receipt Date: 20130822
  Transmission Date: 20140515
  Serious: No
  Sender: FDA-Public Use
  Company Number: US-009507513-1308USA010147

PATIENT
  Age: 38 Year
  Sex: Male
  Weight: 102.4 kg

DRUGS (1)
  1. CLARITIN [Suspect]
     Indication: HYPERSENSITIVITY
     Dosage: 10 MG, QD
     Route: 048
     Dates: start: 20130810, end: 20130811

REACTIONS (2)
  - Accidental overdose [Recovering/Resolving]
  - No adverse event [Recovering/Resolving]
